FAERS Safety Report 6467879-3 (Version None)
Quarter: 2009Q4

REPORT INFORMATION
  Report Type: 
  Country: None (occurrence: None)
  Receive Date: 20091127
  Receipt Date: 20091116
  Transmission Date: 20100525
  Serious: Yes (Life-Threatening)
  Sender: FDA-Public Use
  Company Number: 1-20757250

PATIENT

DRUGS (4)
  1. ULTIVA [Suspect]
     Indication: INDUCTION OF ANAESTHESIA
     Dosage: 0.7 MCG/KG/MIN, INTRAVENOUS
     Route: 042
  2. OXYGEN [Concomitant]
  3. CRYSTALLOID SOLUTION [Concomitant]
  4. PROPOFOL BOLUS [Concomitant]

REACTIONS (3)
  - HYPOVENTILATION [None]
  - LOSS OF CONSCIOUSNESS [None]
  - MUSCLE RIGIDITY [None]
